FAERS Safety Report 14122204 (Version 1)
Quarter: 2017Q4

REPORT INFORMATION
  Report Type: Spontaneous
  Country: US (occurrence: US)
  Receive Date: 20171024
  Receipt Date: 20171024
  Transmission Date: 20180321
  Serious: No
  Sender: FDA-Public Use
  Company Number: US-IMPAX LABORATORIES, INC-2017-IPXL-02228

PATIENT
  Weight: 113 kg

DRUGS (2)
  1. RYTARY [Suspect]
     Active Substance: CARBIDOPA\LEVODOPA
     Indication: PRODUCT USED FOR UNKNOWN INDICATION
     Dosage: GRADUALLY ADJUSTED OVER DOSES TO PRESENT DOSE
     Route: 065
  2. RYTARY [Suspect]
     Active Substance: CARBIDOPA\LEVODOPA
     Dosage: 48.75 MG/195 MG 4 CAPSULES EVERY THREE HOURS, AND 5 CAPSULES AT HS
     Route: 065
     Dates: start: 20170705

REACTIONS (1)
  - Prescribed overdose [Unknown]
